FAERS Safety Report 21665113 (Version 1)
Quarter: 2022Q4

REPORT INFORMATION
  Report Type: Spontaneous
  Country: US (occurrence: US)
  Receive Date: 20221130
  Receipt Date: 20221130
  Transmission Date: 20230112
  Serious: Yes (Hospitalization, Other)
  Sender: FDA-Public Use
  Company Number: US-drreddys-SPO/USA/22/0157650

PATIENT
  Age: 3 Decade
  Sex: Female

DRUGS (9)
  1. PROPOFOL [Suspect]
     Active Substance: PROPOFOL
     Indication: Sedation
  2. LORAZEPAM [Concomitant]
     Active Substance: LORAZEPAM
     Indication: Seizure
  3. CLOBAZAM [Concomitant]
     Active Substance: CLOBAZAM
     Indication: Seizure
  4. PENTOBARBITAL [Concomitant]
     Active Substance: PENTOBARBITAL
     Indication: Seizure
  5. PERAMPANEL [Concomitant]
     Active Substance: PERAMPANEL
     Indication: Seizure
  6. KETAMINE [Concomitant]
     Active Substance: KETAMINE
     Indication: Seizure
  7. VALPROIC ACID [Concomitant]
     Active Substance: VALPROIC ACID
     Indication: Seizure
  8. LACOSAMIDE [Concomitant]
     Active Substance: LACOSAMIDE
     Indication: Seizure
  9. CLONAZEPAM [Concomitant]
     Active Substance: CLONAZEPAM
     Indication: Seizure

REACTIONS (4)
  - Propofol infusion syndrome [Unknown]
  - Vasospasm [Unknown]
  - Cerebral infarction [Unknown]
  - Hypotension [Unknown]
